FAERS Safety Report 26098305 (Version 1)
Quarter: 2025Q4

REPORT INFORMATION
  Report Type: Spontaneous
  Country: GB (occurrence: GB)
  Receive Date: 20251127
  Receipt Date: 20251127
  Transmission Date: 20260117
  Serious: Yes (Life-Threatening, Hospitalization, Other)
  Sender: PFIZER
  Company Number: GB-PFIZER INC-PV202500139845

PATIENT
  Age: 15 Year
  Sex: Female
  Weight: 60 kg

DRUGS (1)
  1. INFLIXIMAB [Suspect]
     Active Substance: INFLIXIMAB
     Indication: Inflammatory bowel disease
     Dosage: 20 MG/KG
     Route: 065
     Dates: start: 20250610, end: 20250610

REACTIONS (2)
  - Obstructive airways disorder [Recovered/Resolved]
  - Off label use [Unknown]

NARRATIVE: CASE EVENT DATE: 20250610
